FAERS Safety Report 10525460 (Version 2)
Quarter: 2014Q4

REPORT INFORMATION
  Report Type: Spontaneous
  Country: JP (occurrence: JP)
  Receive Date: 20141017
  Receipt Date: 20141203
  Transmission Date: 20150528
  Serious: Yes (Other)
  Sender: FDA-Public Use
  Company Number: PHHY2014JP134446

PATIENT
  Age: 74 Year
  Sex: Female

DRUGS (3)
  1. ZOMETA [Suspect]
     Active Substance: ZOLEDRONIC ACID
     Indication: BONE LESION
  2. ZOMETA [Suspect]
     Active Substance: ZOLEDRONIC ACID
     Indication: PLASMA CELL MYELOMA
     Route: 065
     Dates: start: 20071002, end: 20090202
  3. AMOXICILLIN. [Concomitant]
     Active Substance: AMOXICILLIN
     Indication: METASTASES TO BONE
     Dosage: 750 MG, UNK
     Route: 048
     Dates: start: 20090416, end: 20090423

REACTIONS (5)
  - Exposed bone in jaw [Unknown]
  - Periodontitis [Unknown]
  - Osteonecrosis of jaw [Not Recovered/Not Resolved]
  - Impaired healing [Unknown]
  - Primary sequestrum [Unknown]

NARRATIVE: CASE EVENT DATE: 20090427
